FAERS Safety Report 9254552 (Version 1)
Quarter: 2013Q1

REPORT INFORMATION
  Report Type: Spontaneous
  Country: US (occurrence: None)
  Receive Date: 20121203
  Receipt Date: 20121203
  Transmission Date: 20140127
  Serious: Yes (Life-Threatening, Hospitalization, Other)
  Sender: FDA-Public Use
  Company Number: 2012SP011838

PATIENT
  Age: 22 Year
  Sex: Female
  Weight: 85.3 kg

DRUGS (1)
  1. NUVARING [Suspect]
     Indication: CONTRACEPTION
     Dates: start: 20080918, end: 201003

REACTIONS (30)
  - Deep vein thrombosis [None]
  - Pulmonary embolism [None]
  - Pruritus [None]
  - Phlebitis [None]
  - Migraine [None]
  - Asthenia [None]
  - Depression [None]
  - Asthma [None]
  - Ovarian cyst [None]
  - Heart rate irregular [None]
  - Anxiety [None]
  - Insomnia [None]
  - Spinal osteoarthritis [None]
  - Scoliosis [None]
  - Smear cervix abnormal [None]
  - Chest pain [None]
  - Dyspnoea [None]
  - Limb injury [None]
  - Panic attack [None]
  - Abdominal pain [None]
  - Fall [None]
  - Back pain [None]
  - Ligament sprain [None]
  - Headache [None]
  - Laceration [None]
  - Injury [None]
  - Syncope [None]
  - Ovarian cyst ruptured [None]
  - Hepatic steatosis [None]
  - Bronchitis [None]
